FAERS Safety Report 6759134-9 (Version None)
Quarter: 2010Q2

REPORT INFORMATION
  Report Type: 
  Country: None (occurrence: None)
  Receive Date: 20100607
  Receipt Date: 20100528
  Transmission Date: 20101027
  Serious: Yes (Disabling)
  Sender: FDA-Public Use
  Company Number: JP-ROCHE-707530

PATIENT
  Sex: Female

DRUGS (10)
  1. CAPECITABINE [Suspect]
     Indication: COLON CANCER
     Route: 048
     Dates: start: 20090418, end: 20090501
  2. CAPECITABINE [Suspect]
     Route: 048
     Dates: start: 20090509, end: 20090522
  3. CAPECITABINE [Suspect]
     Route: 048
     Dates: start: 20090620, end: 20090703
  4. CAPECITABINE [Suspect]
     Route: 048
     Dates: start: 20090711, end: 20090724
  5. CAPECITABINE [Suspect]
     Route: 048
     Dates: start: 20090801, end: 20090814
  6. CAPECITABINE [Suspect]
     Route: 048
     Dates: start: 20090822, end: 20090904
  7. CAPECITABINE [Suspect]
     Route: 048
     Dates: start: 20090912, end: 20090925
  8. CAPECITABINE [Suspect]
     Route: 048
     Dates: start: 20091003, end: 20091016
  9. TAKEPRON [Concomitant]
     Dosage: DOSE FORM: PERORAL AGENT
     Route: 048
  10. URSO 250 [Concomitant]
     Dosage: DOSEFORM: PERORAL AGENT
     Route: 048
     Dates: end: 20090522

REACTIONS (5)
  - DECREASED APPETITE [None]
  - DIARRHOEA [None]
  - FATIGUE [None]
  - MALAISE [None]
  - PALMAR-PLANTAR ERYTHRODYSAESTHESIA SYNDROME [None]
